FAERS Safety Report 9636026 (Version 1)
Quarter: 2013Q4

REPORT INFORMATION
  Report Type: Spontaneous
  Country: CO (occurrence: CO)
  Receive Date: 20131021
  Receipt Date: 20131021
  Transmission Date: 20140711
  Serious: Yes (Other)
  Sender: FDA-Public Use
  Company Number: CO-UCBSA-100480

PATIENT
  Age: 55 Year
  Sex: Female

DRUGS (3)
  1. CERTOLIZUMAB PEGOL [Suspect]
     Indication: RHEUMATOID ARTHRITIS
     Route: 058
     Dates: start: 20121130, end: 20130328
  2. LEFLUNOMIDE [Concomitant]
     Dates: start: 20121130
  3. DEFLAZACORT [Concomitant]
     Dates: start: 20121130

REACTIONS (2)
  - Post procedural infection [Unknown]
  - Knee arthroplasty [Unknown]
